FAERS Safety Report 26116656 (Version 1)
Quarter: 2025Q4

REPORT INFORMATION
  Report Type: Spontaneous
  Country: AU (occurrence: AU)
  Receive Date: 20251203
  Receipt Date: 20251203
  Transmission Date: 20260118
  Serious: Yes (Other)
  Sender: ACCORD
  Company Number: AU-MLMSERVICE-20251117-PI714129-00218-1

PATIENT
  Age: 84 Year
  Sex: Female

DRUGS (2)
  1. METHOTREXATE [Suspect]
     Active Substance: METHOTREXATE
     Indication: Connective tissue disorder
  2. HYDROXYCHLOROQUINE [Concomitant]
     Active Substance: HYDROXYCHLOROQUINE
     Indication: Connective tissue disorder

REACTIONS (3)
  - Granulomatous pneumonitis [Recovering/Resolving]
  - Hypercalcaemia [Recovering/Resolving]
  - Off label use [Unknown]
